FAERS Safety Report 5063983-5 (Version None)
Quarter: 2006Q3

REPORT INFORMATION
  Report Type: 
  Country: None (occurrence: None)
  Receive Date: 20060703
  Receipt Date: 20050913
  Transmission Date: 20061208
  Serious: No
  Sender: FDA-Public Use
  Company Number: 2005S1008980

PATIENT
  Age: 53 Year
  Sex: Female

DRUGS (5)
  1. CLOZAPINE [Suspect]
     Indication: MAJOR DEPRESSION
     Dosage: 200 MG;TID;PO
     Route: 048
     Dates: start: 20050401
  2. BENZTROPINE MESYLATE [Concomitant]
  3. VALPROATE SODIUM [Concomitant]
  4. RISPERIDONE [Concomitant]
  5. CHLORPROMAZINE HYDROCHLORIDE [Concomitant]

REACTIONS (1)
  - GRANULOCYTOPENIA [None]
